FAERS Safety Report 17066898 (Version 1)
Quarter: 2019Q4

REPORT INFORMATION
  Report Type: Report from Study
  Country: US (occurrence: US)
  Receive Date: 20191122
  Receipt Date: 20191122
  Transmission Date: 20200122
  Serious: Yes (Other)
  Sender: FDA-Public Use
  Company Number: US-GLAXOSMITHKLINE-US2019GSK206091

PATIENT
  Age: 35 Year
  Sex: Female

DRUGS (1)
  1. EPOPROSTENOL SODIUM. [Suspect]
     Active Substance: EPOPROSTENOL SODIUM
     Indication: PULMONARY ARTERIAL HYPERTENSION
     Dosage: UNK
     Route: 042

REACTIONS (5)
  - Dysphagia [Unknown]
  - Oropharyngeal pain [Unknown]
  - Goitre [Unknown]
  - Dyspnoea [Unknown]
  - Autoimmune thyroiditis [Unknown]
